FAERS Safety Report 23632620 (Version 1)
Quarter: 2024Q1

REPORT INFORMATION
  Report Type: Spontaneous
  Country: GB (occurrence: None)
  Receive Date: 20240314
  Receipt Date: 20240314
  Transmission Date: 20240410
  Serious: Yes (Hospitalization, Other)
  Sender: FDA-Public Use
  Company Number: 2023A128823

PATIENT
  Sex: Female
  Weight: 98.8 kg

DRUGS (1)
  1. FASENRA [Suspect]
     Active Substance: BENRALIZUMAB
     Indication: Asthma
     Route: 058
     Dates: start: 202004, end: 202401

REACTIONS (4)
  - Drug ineffective [Unknown]
  - Exposure during pregnancy [Unknown]
  - Neutralising antibodies positive [Unknown]
  - Eosinophil count increased [Unknown]
